FAERS Safety Report 9206694 (Version 1)
Quarter: 2013Q2

REPORT INFORMATION
  Report Type: Spontaneous
  Country: US (occurrence: None)
  Receive Date: 20130401
  Receipt Date: 20130401
  Transmission Date: 20140414
  Serious: No
  Sender: FDA-Public Use
  Company Number: 1652640

PATIENT
  Age: 58 Year
  Sex: Female

DRUGS (2)
  1. (OXALIPLATIN) [Suspect]
     Indication: COLORECTAL CANCER
     Dosage: 130MG 21 DAY
  2. CAPECITABINE [Suspect]
     Indication: COLORECTAL CANCER
     Dosage: 1000 MG DAY 1-14 Q21 UNKOWN ORAL

REACTIONS (1)
  - Bladder disorder [None]
